FAERS Safety Report 8031962-1 (Version None)
Quarter: 2012Q1

REPORT INFORMATION
  Report Type: 
  Country: None (occurrence: None)
  Receive Date: 20120109
  Receipt Date: 20110406
  Transmission Date: 20120608
  Serious: No
  Sender: FDA-Public Use
  Company Number: US-ABBOTT-11P-163-0716932-00

PATIENT
  Age: 44 Year
  Sex: Male

DRUGS (1)
  1. VICODIN [Suspect]
     Indication: HYDROCEPHALUS
     Dosage: 5/500MG

REACTIONS (2)
  - ILL-DEFINED DISORDER [None]
  - HYPOTHALAMO-PITUITARY DISORDER [None]
